FAERS Safety Report 7373603-2 (Version None)
Quarter: 2011Q1

REPORT INFORMATION
  Report Type: 
  Country: None (occurrence: None)
  Receive Date: 20110325
  Receipt Date: 20110202
  Transmission Date: 20110831
  Serious: Yes (Death)
  Sender: FDA-Public Use
  Company Number: US-BAYER-200912859NA

PATIENT
  Sex: Male

DRUGS (10)
  1. TRASYLOL [Suspect]
     Indication: CORONARY ARTERY BYPASS
  2. CARDIZEM [Concomitant]
     Indication: SUPRAVENTRICULAR TACHYCARDIA
     Dosage: INFUSION
     Route: 042
     Dates: start: 20060926
  3. ADENOCARD [Concomitant]
     Indication: SUPRAVENTRICULAR TACHYCARDIA
     Dosage: 2 DOSES
     Route: 042
     Dates: start: 20060925, end: 20060925
  4. METOPROLOL [Concomitant]
     Dosage: UNK MG, UNK
     Route: 048
     Dates: start: 20060925
  5. ACETYLSALICYLIC ACID SRT [Concomitant]
     Dosage: 325 MG, UNK
     Route: 048
  6. PLAVIX [Concomitant]
     Indication: ACUTE MYOCARDIAL INFARCTION
     Dosage: UNK
     Dates: start: 20060925, end: 20060926
  7. LISINOPRIL [Concomitant]
     Indication: HYPERTENSION
     Dosage: 40 MG, QD
     Route: 048
  8. TRASYLOL [Suspect]
     Indication: CARDIAC OPERATION
     Route: 042
     Dates: start: 20060928
  9. CARDIZEM [Concomitant]
     Indication: HYPERTENSION
     Dosage: 15 MG, BID
     Route: 048
  10. HEPARIN [Concomitant]
     Dosage: UNK
     Route: 042
     Dates: start: 20060925

REACTIONS (5)
  - INJURY [None]
  - RENAL FAILURE [None]
  - PAIN [None]
  - UNEVALUABLE EVENT [None]
  - RENAL FAILURE ACUTE [None]
